FAERS Safety Report 17500547 (Version 1)
Quarter: 2020Q1

REPORT INFORMATION
  Report Type: Spontaneous
  Country: US (occurrence: US)
  Receive Date: 20200305
  Receipt Date: 20200305
  Transmission Date: 20200409
  Serious: Yes (Hospitalization, Other)
  Sender: FDA-Public Use
  Company Number: US-ACCORD-174797

PATIENT
  Age: 62 Year
  Sex: Male

DRUGS (7)
  1. METHYLPREDNISOLONE. [Suspect]
     Active Substance: METHYLPREDNISOLONE
     Indication: AUTOIMMUNE HEPATITIS
     Dosage: (1 MG/KG TWICE DAILY FOR ONE MONTH, THEN TAPERED OFF IN 2 MONTHS)
  2. RITUXIMAB. [Concomitant]
     Active Substance: RITUXIMAB
     Indication: METASTATIC RENAL CELL CARCINOMA
     Dosage: RITUXIMAB 375 MG/M^2 PER DOSE EVERY 3 WEEKS
  3. MYCOPHENOLATE MOFETIL. [Suspect]
     Active Substance: MYCOPHENOLATE MOFETIL
     Indication: AUTOIMMUNE HEPATITIS
     Route: 048
  4. PREDNISONE. [Suspect]
     Active Substance: PREDNISONE
     Indication: AUTOIMMUNE HEPATITIS
     Dosage: WITH DOSE TAPERING OVER A MONTH.
     Route: 048
  5. PREDNISONE. [Suspect]
     Active Substance: PREDNISONE
     Indication: AUTOIMMUNE HEPATITIS
     Dosage: DOSE TAPERING OVER A MONTH.
     Route: 048
  6. METHYLPREDNISOLONE. [Suspect]
     Active Substance: METHYLPREDNISOLONE
     Indication: AUTOIMMUNE HEPATITIS
     Route: 042
  7. MYCOPHENOLIC ACID. [Suspect]
     Active Substance: MYCOPHENOLIC ACID
     Indication: AUTOIMMUNE HEPATITIS
     Route: 048

REACTIONS (5)
  - Off label use [Unknown]
  - Necrotising fasciitis [Recovering/Resolving]
  - Aspergillus infection [Recovering/Resolving]
  - Subcutaneous abscess [Recovering/Resolving]
  - Necrotising soft tissue infection [Recovering/Resolving]
